FAERS Safety Report 7332551-4 (Version None)
Quarter: 2011Q1

REPORT INFORMATION
  Report Type: 
  Country: None (occurrence: None)
  Receive Date: 20110304
  Receipt Date: 20110225
  Transmission Date: 20110831
  Serious: Yes (Death)
  Sender: FDA-Public Use
  Company Number: PHHY2011PT16156

PATIENT
  Age: 59 Year
  Sex: Male

DRUGS (8)
  1. PREDNISOLONE [Concomitant]
     Indication: RENAL TRANSPLANT
  2. TACROLIMUS [Concomitant]
     Indication: RENAL TRANSPLANT
  3. PIPERACILLIN AND TAZOBACTAM [Concomitant]
  4. ANESTHETICS, GENERAL [Concomitant]
  5. BASILIXIMAB [Suspect]
     Indication: RENAL TRANSPLANT
  6. MYCOPHENOLATE MOFETIL [Concomitant]
     Indication: RENAL TRANSPLANT
  7. VALGANCICLOVIR [Concomitant]
  8. TPN [Concomitant]

REACTIONS (4)
  - ABDOMINAL PAIN [None]
  - CACHEXIA [None]
  - SEPSIS [None]
  - ABSCESS LIMB [None]
